FAERS Safety Report 6713650-4 (Version None)
Quarter: 2010Q2

REPORT INFORMATION
  Report Type: 
  Country: None (occurrence: None)
  Receive Date: 20100506
  Receipt Date: 20100427
  Transmission Date: 20101027
  Serious: Yes (Hospitalization)
  Sender: FDA-Public Use
  Company Number: B0650352A

PATIENT
  Sex: Male

DRUGS (5)
  1. ROPINIROLE HYDROCHLORIDE [Suspect]
     Indication: PARKINSON'S DISEASE
     Dosage: 2MG THREE TIMES PER DAY
     Route: 048
  2. ENTACAPONE [Concomitant]
     Dosage: 100MG THREE TIMES PER DAY
     Route: 065
  3. MADOPAR [Concomitant]
     Route: 065
  4. QUETIAPINE [Concomitant]
     Route: 065
  5. AMANTADINE HCL [Concomitant]
     Route: 065

REACTIONS (3)
  - CONFUSIONAL STATE [None]
  - DEHYDRATION [None]
  - DYSPHAGIA [None]
